FAERS Safety Report 8327427-X (Version None)
Quarter: 2012Q2

REPORT INFORMATION
  Report Type: 
  Country: None (occurrence: None)
  Receive Date: 20120423
  Receipt Date: 20120412
  Transmission Date: 20120825
  Serious: Yes (Other)
  Sender: FDA-Public Use
  Company Number: 2012031831

PATIENT
  Sex: Female
  Weight: 61.2356 kg

DRUGS (59)
  1. VIVAGLOBIN [Suspect]
  2. VIVAGLOBIN [Suspect]
  3. VIVAGLOBIN [Suspect]
  4. VIVAGLOBIN [Suspect]
  5. VIVAGLOBIN [Suspect]
  6. VIVAGLOBIN [Suspect]
  7. VIVAGLOBIN [Suspect]
  8. VIVAGLOBIN [Suspect]
  9. VIVAGLOBIN [Suspect]
  10. VIVAGLOBIN [Suspect]
  11. VIVAGLOBIN [Suspect]
  12. VIVAGLOBIN [Suspect]
  13. VIVAGLOBIN [Suspect]
  14. VIVAGLOBIN [Suspect]
  15. VIVAGLOBIN [Suspect]
  16. VIVAGLOBIN [Suspect]
  17. VIVAGLOBIN [Suspect]
     Indication: HYPOGAMMAGLOBULINAEMIA
     Dosage: (9.6 G 1X/WEEK SUBCUTANEOUS)
     Route: 058
     Dates: start: 20091117, end: 20110501
  18. VIVAGLOBIN [Suspect]
     Indication: IMMUNODEFICIENCY COMMON VARIABLE
     Dosage: (9.6 G 1X/WEEK SUBCUTANEOUS)
     Route: 058
     Dates: start: 20091117, end: 20110501
  19. VIVAGLOBIN [Suspect]
     Indication: HYPOGAMMAGLOBULINAEMIA
     Dosage: (9.6 G 1X/WEEK SUBCUTANEOUS)
     Route: 058
     Dates: start: 20101026
  20. VIVAGLOBIN [Suspect]
     Indication: IMMUNODEFICIENCY COMMON VARIABLE
     Dosage: (9.6 G 1X/WEEK SUBCUTANEOUS)
     Route: 058
     Dates: start: 20101026
  21. VIVAGLOBIN [Suspect]
     Indication: HYPOGAMMAGLOBULINAEMIA
     Dosage: (9.6 G 1X/WEEK SUBCUTANEOUS)
     Route: 058
     Dates: start: 20100216
  22. VIVAGLOBIN [Suspect]
     Indication: IMMUNODEFICIENCY COMMON VARIABLE
     Dosage: (9.6 G 1X/WEEK SUBCUTANEOUS)
     Route: 058
     Dates: start: 20100216
  23. VIVAGLOBIN [Suspect]
     Indication: HYPOGAMMAGLOBULINAEMIA
     Dosage: (9.6 G 1X/WEEK SUBCUTANEOUS)
     Route: 058
     Dates: start: 20110106
  24. VIVAGLOBIN [Suspect]
     Indication: IMMUNODEFICIENCY COMMON VARIABLE
     Dosage: (9.6 G 1X/WEEK SUBCUTANEOUS)
     Route: 058
     Dates: start: 20110106
  25. VIVAGLOBIN [Suspect]
     Indication: HYPOGAMMAGLOBULINAEMIA
     Dosage: (9.6 G 1X/WEEK SUBCUTANEOUS)
     Route: 058
     Dates: start: 20100316
  26. VIVAGLOBIN [Suspect]
     Indication: IMMUNODEFICIENCY COMMON VARIABLE
     Dosage: (9.6 G 1X/WEEK SUBCUTANEOUS)
     Route: 058
     Dates: start: 20100316
  27. VIVAGLOBIN [Suspect]
     Indication: HYPOGAMMAGLOBULINAEMIA
     Dosage: (9.6 G 1X/WEEK SUBCUTANEOUS)
     Route: 058
     Dates: start: 20100511
  28. VIVAGLOBIN [Suspect]
     Indication: IMMUNODEFICIENCY COMMON VARIABLE
     Dosage: (9.6 G 1X/WEEK SUBCUTANEOUS)
     Route: 058
     Dates: start: 20100511
  29. VIVAGLOBIN [Suspect]
     Indication: HYPOGAMMAGLOBULINAEMIA
     Dosage: (9.6 G 1X/WEEK SUBCUTANEOUS)
     Route: 058
     Dates: start: 20100831
  30. VIVAGLOBIN [Suspect]
     Indication: IMMUNODEFICIENCY COMMON VARIABLE
     Dosage: (9.6 G 1X/WEEK SUBCUTANEOUS)
     Route: 058
     Dates: start: 20100831
  31. VIVAGLOBIN [Suspect]
     Indication: HYPOGAMMAGLOBULINAEMIA
     Dosage: (9.6 G 1X/WEEK SUBCUTANEOUS)
     Route: 058
     Dates: start: 20110427
  32. VIVAGLOBIN [Suspect]
     Indication: IMMUNODEFICIENCY COMMON VARIABLE
     Dosage: (9.6 G 1X/WEEK SUBCUTANEOUS)
     Route: 058
     Dates: start: 20110427
  33. VIVAGLOBIN [Suspect]
     Indication: HYPOGAMMAGLOBULINAEMIA
     Dosage: (9.6 G 1X/WEEK SUBCUTANEOUS)
     Route: 058
     Dates: start: 20091215
  34. VIVAGLOBIN [Suspect]
     Indication: IMMUNODEFICIENCY COMMON VARIABLE
     Dosage: (9.6 G 1X/WEEK SUBCUTANEOUS)
     Route: 058
     Dates: start: 20091215
  35. VIVAGLOBIN [Suspect]
     Indication: HYPOGAMMAGLOBULINAEMIA
     Dosage: (9.6 G 1X/WEEK SUBCUTANEOUS)
     Route: 058
     Dates: start: 20100607
  36. VIVAGLOBIN [Suspect]
     Indication: IMMUNODEFICIENCY COMMON VARIABLE
     Dosage: (9.6 G 1X/WEEK SUBCUTANEOUS)
     Route: 058
     Dates: start: 20100607
  37. VIVAGLOBIN [Suspect]
     Indication: HYPOGAMMAGLOBULINAEMIA
     Dosage: (9.6 G 1X/WEEK SUBCUTANEOUS)
     Route: 058
     Dates: start: 20101122
  38. VIVAGLOBIN [Suspect]
     Indication: IMMUNODEFICIENCY COMMON VARIABLE
     Dosage: (9.6 G 1X/WEEK SUBCUTANEOUS)
     Route: 058
     Dates: start: 20101122
  39. VIVAGLOBIN [Suspect]
     Indication: HYPOGAMMAGLOBULINAEMIA
     Dosage: (9.6 G 1X/WEEK SUBCUTANEOUS)
     Route: 058
     Dates: start: 20110329
  40. VIVAGLOBIN [Suspect]
     Indication: IMMUNODEFICIENCY COMMON VARIABLE
     Dosage: (9.6 G 1X/WEEK SUBCUTANEOUS)
     Route: 058
     Dates: start: 20110329
  41. VIVAGLOBIN [Suspect]
     Indication: HYPOGAMMAGLOBULINAEMIA
     Dosage: (9.6 G 1X/WEEK SUBCUTANEOUS)
     Route: 058
     Dates: start: 20100118
  42. VIVAGLOBIN [Suspect]
     Indication: IMMUNODEFICIENCY COMMON VARIABLE
     Dosage: (9.6 G 1X/WEEK SUBCUTANEOUS)
     Route: 058
     Dates: start: 20100118
  43. VIVAGLOBIN [Suspect]
     Indication: HYPOGAMMAGLOBULINAEMIA
     Dosage: (9.6 G 1X/WEEK SUBCUTANEOUS)
     Route: 058
     Dates: start: 20100706
  44. VIVAGLOBIN [Suspect]
     Indication: IMMUNODEFICIENCY COMMON VARIABLE
     Dosage: (9.6 G 1X/WEEK SUBCUTANEOUS)
     Route: 058
     Dates: start: 20100706
  45. VIVAGLOBIN [Suspect]
     Indication: HYPOGAMMAGLOBULINAEMIA
     Dosage: (9.6 G 1X/WEEK SUBCUTANEOUS)
     Route: 058
     Dates: start: 20110126
  46. VIVAGLOBIN [Suspect]
     Indication: IMMUNODEFICIENCY COMMON VARIABLE
     Dosage: (9.6 G 1X/WEEK SUBCUTANEOUS)
     Route: 058
     Dates: start: 20110126
  47. VIVAGLOBIN [Suspect]
     Indication: HYPOGAMMAGLOBULINAEMIA
     Dosage: (9.6 G 1X/WEEK SUBCUTANEOUS)
     Route: 058
     Dates: start: 20110222
  48. VIVAGLOBIN [Suspect]
     Indication: IMMUNODEFICIENCY COMMON VARIABLE
     Dosage: (9.6 G 1X/WEEK SUBCUTANEOUS)
     Route: 058
     Dates: start: 20110222
  49. VIVAGLOBIN [Suspect]
     Indication: HYPOGAMMAGLOBULINAEMIA
     Dosage: (9.6 G 1X/WEEK SUBCUTANEOUS)
     Route: 058
     Dates: start: 20100928
  50. VIVAGLOBIN [Suspect]
     Indication: IMMUNODEFICIENCY COMMON VARIABLE
     Dosage: (9.6 G 1X/WEEK SUBCUTANEOUS)
     Route: 058
     Dates: start: 20100928
  51. VIVAGLOBIN [Suspect]
     Indication: HYPOGAMMAGLOBULINAEMIA
     Dosage: (9.6 G 1X/WEEK SUBCUTANEOUS)
     Route: 058
     Dates: start: 20101221
  52. VIVAGLOBIN [Suspect]
     Indication: IMMUNODEFICIENCY COMMON VARIABLE
     Dosage: (9.6 G 1X/WEEK SUBCUTANEOUS)
     Route: 058
     Dates: start: 20101221
  53. VIVAGLOBIN [Suspect]
     Indication: HYPOGAMMAGLOBULINAEMIA
     Dosage: (9.6 G 1X/WEEK SUBCUTANEOUS)
     Route: 058
     Dates: start: 20091117
  54. VIVAGLOBIN [Suspect]
     Indication: IMMUNODEFICIENCY COMMON VARIABLE
     Dosage: (9.6 G 1X/WEEK SUBCUTANEOUS)
     Route: 058
     Dates: start: 20091117
  55. VIVAGLOBIN [Suspect]
     Indication: HYPOGAMMAGLOBULINAEMIA
     Dosage: (9.6 G 1X/WEEK SUBCUTANEOUS)
     Route: 058
     Dates: start: 20100803
  56. VIVAGLOBIN [Suspect]
     Indication: IMMUNODEFICIENCY COMMON VARIABLE
     Dosage: (9.6 G 1X/WEEK SUBCUTANEOUS)
     Route: 058
     Dates: start: 20100803
  57. VIVAGLOBIN [Suspect]
  58. VIVAGLOBIN [Suspect]
  59. VIVAGLOBIN [Suspect]

REACTIONS (2)
  - TRANSMISSION OF AN INFECTIOUS AGENT VIA A MEDICINAL PRODUCT [None]
  - HERPES SIMPLEX SEROLOGY POSITIVE [None]
